FAERS Safety Report 6032664-3 (Version None)
Quarter: 2009Q1

REPORT INFORMATION
  Report Type: 
  Country: None (occurrence: None)
  Receive Date: 20090109
  Receipt Date: 20090105
  Transmission Date: 20090719
  Serious: Yes (Hospitalization)
  Sender: FDA-Public Use
  Company Number: PHHO2009JP00508

PATIENT
  Sex: Female

DRUGS (14)
  1. NEORAL [Suspect]
     Indication: RENAL TRANSPLANT
     Dosage: 100 MG, BID
     Route: 048
     Dates: start: 20081207, end: 20090102
  2. NEORAL [Suspect]
     Dosage: 75 MG, BID
     Route: 048
     Dates: start: 20090102, end: 20090105
  3. NEORAL [Suspect]
     Dosage: 100 MG, BID
     Route: 048
     Dates: start: 20090105
  4. MYCOPHENOLATE MOFETIL [Suspect]
     Indication: RENAL TRANSPLANT
     Dosage: 2 G, QD
     Route: 048
     Dates: start: 20081202
  5. NEUER [Concomitant]
  6. ALLOID [Concomitant]
  7. MALFA [Concomitant]
  8. TAKEPRON [Concomitant]
  9. MEDROL [Concomitant]
  10. COTRIM [Concomitant]
  11. ZOVIRAX [Concomitant]
  12. ISODINE [Concomitant]
  13. FUNGIZONE [Concomitant]
  14. URINORM [Concomitant]

REACTIONS (12)
  - ABDOMINAL PAIN [None]
  - AXILLARY PAIN [None]
  - BLOOD SODIUM DECREASED [None]
  - DECREASED APPETITE [None]
  - DIARRHOEA [None]
  - ELECTROLYTE IMBALANCE [None]
  - GASTROENTERITIS [None]
  - NAUSEA [None]
  - NEPHROLITHIASIS [None]
  - RENAL TUBULAR DISORDER [None]
  - RESIDUAL URINE [None]
  - VOMITING [None]
